FAERS Safety Report 7749691-8 (Version None)
Quarter: 2011Q3

REPORT INFORMATION
  Report Type: 
  Country: None (occurrence: None)
  Receive Date: 20110914
  Receipt Date: 20110902
  Transmission Date: 20111222
  Serious: Yes (Hospitalization)
  Sender: FDA-Public Use
  Company Number: DE-ROCHE-790290

PATIENT
  Sex: Female
  Weight: 61 kg

DRUGS (2)
  1. TOCILIZUMAB [Suspect]
     Indication: RHEUMATOID ARTHRITIS
     Route: 042
     Dates: start: 20110630
  2. LEVOTHYROXINE SODIUM [Concomitant]
     Route: 048

REACTIONS (5)
  - COLITIS [None]
  - CLOSTRIDIAL INFECTION [None]
  - ABDOMINAL PAIN UPPER [None]
  - GASTROENTERITIS ESCHERICHIA COLI [None]
  - DIARRHOEA HAEMORRHAGIC [None]
